FAERS Safety Report 25151953 (Version 2)
Quarter: 2025Q2

REPORT INFORMATION
  Report Type: Spontaneous
  Country: JP (occurrence: JP)
  Receive Date: 20250402
  Receipt Date: 20250505
  Transmission Date: 20250716
  Serious: Yes (Hospitalization, Other)
  Sender: MERCK SHARP & DOHME LLC
  Company Number: JP-009507513-2271080

PATIENT
  Age: 8 Decade
  Sex: Female

DRUGS (1)
  1. KEYTRUDA [Suspect]
     Active Substance: PEMBROLIZUMAB
     Indication: Renal cell carcinoma
     Dosage: DOSAGE: 200MG EVERY 3 WEEKS
     Route: 042
     Dates: start: 202310, end: 202409

REACTIONS (1)
  - Immune-mediated adrenal insufficiency [Recovered/Resolved]

NARRATIVE: CASE EVENT DATE: 20250101
